FAERS Safety Report 5400200-8 (Version None)
Quarter: 2007Q3

REPORT INFORMATION
  Report Type: 
  Country: None (occurrence: None)
  Receive Date: 20070730
  Receipt Date: 20070619
  Transmission Date: 20080115
  Serious: Yes (Life-Threatening, Hospitalization)
  Sender: FDA-Public Use
  Company Number: DE-AVENTIS-200711505DE

PATIENT
  Sex: Male

DRUGS (3)
  1. CLEXANE [Suspect]
     Indication: PHLEBITIS
     Dosage: DOSE: NOT REPORTED
     Dates: start: 20070101
  2. CLEXANE [Suspect]
     Dosage: DOSE: NOT REPORTED
     Dates: start: 20070101
  3. ALL OTHER THERAPEUTIC PRODUCTS [Suspect]
     Dosage: DOSE: NOT REPORTED

REACTIONS (1)
  - MYOCARDIAL INFARCTION [None]
